FAERS Safety Report 25958489 (Version 1)
Quarter: 2025Q4

REPORT INFORMATION
  Report Type: Spontaneous
  Country: CL (occurrence: CL)
  Receive Date: 20251024
  Receipt Date: 20251024
  Transmission Date: 20260118
  Serious: Yes (Other)
  Sender: PFIZER
  Company Number: CL-PFIZER INC-PV202500125667

PATIENT
  Sex: Female

DRUGS (1)
  1. IBRANCE [Suspect]
     Active Substance: PALBOCICLIB
     Dosage: 100 MG, DAILY
     Route: 048

REACTIONS (4)
  - Myocardial infarction [Unknown]
  - Bronchitis [Unknown]
  - Nasopharyngitis [Unknown]
  - Weight decreased [Unknown]

NARRATIVE: CASE EVENT DATE: 20230101
